FAERS Safety Report 15007644 (Version 3)
Quarter: 2020Q3

REPORT INFORMATION
  Report Type: Report from Study
  Country: AU (occurrence: AU)
  Receive Date: 20180613
  Receipt Date: 20180628
  Transmission Date: 20201105
  Serious: Yes (Hospitalization)
  Sender: FDA-Public Use
  Company Number: AU-ASTRAZENECA-2018SE75961

PATIENT
  Age: 55 Year
  Sex: Female

DRUGS (8)
  1. CARBOPLATIN. [Suspect]
     Active Substance: CARBOPLATIN
     Indication: NON-SMALL CELL LUNG CANCER
     Dosage: 620 MG, D1, EVERY 21 DAYS
     Route: 042
     Dates: start: 20180412
  2. METOCLOPRAMIDE. [Concomitant]
     Active Substance: METOCLOPRAMIDE
     Indication: NAUSEA
     Dates: start: 20180412
  3. DURVALUMAB. [Suspect]
     Active Substance: DURVALUMAB
     Indication: NON-SMALL CELL LUNG CANCER
     Dosage: 1500 MG D1,EVERY 21 DAYS (FOR 4 CYCLES), THEN EVERY FOUR WEEKS
     Route: 042
     Dates: start: 20180412
  4. TREMELIMUMAB. [Suspect]
     Active Substance: TREMELIMUMAB
     Indication: NON-SMALL CELL LUNG CANCER
     Dosage: 75 MG D1,EVERY 21 DAYS (FOR 4 CYCLES)
     Route: 042
     Dates: start: 20180412
  5. PREGABALIN. [Concomitant]
     Active Substance: PREGABALIN
     Indication: BACK PAIN
     Dates: start: 20180411
  6. OXYCODONE [Concomitant]
     Active Substance: OXYCODONE
     Indication: BACK PAIN
     Dates: start: 20180406
  7. FOLIC ACID. [Concomitant]
     Active Substance: FOLIC ACID
     Indication: PROPHYLAXIS
     Dates: start: 20180406
  8. PEMETREXED. [Suspect]
     Active Substance: PEMETREXED
     Indication: NON-SMALL CELL LUNG CANCER
     Dosage: 685 MG D1,EVERY 21 DAYS (FOR 4 CYCLES), THEN EVERY FOUR WEEKS
     Route: 042
     Dates: start: 20180412

REACTIONS (3)
  - Platelet count decreased [Recovered/Resolved]
  - Neutrophil count decreased [Recovered/Resolved]
  - Anaemia [Not Recovered/Not Resolved]

NARRATIVE: CASE EVENT DATE: 20180607
